FAERS Safety Report 5464145-X (Version None)
Quarter: 2007Q3

REPORT INFORMATION
  Report Type: 
  Country: None (occurrence: None)
  Receive Date: 20070921
  Receipt Date: 20070910
  Transmission Date: 20080115
  Serious: Yes (Hospitalization)
  Sender: FDA-Public Use
  Company Number: JP-ASTRAZENECA-2007AP05899

PATIENT
  Age: 27 Year
  Sex: Male

DRUGS (3)
  1. SEROQUEL [Suspect]
     Indication: HYPOCHONDRIASIS
     Route: 048
     Dates: start: 20070701, end: 20070812
  2. SEROQUEL [Suspect]
     Indication: SCHIZOPHRENIA
     Route: 048
     Dates: start: 20070701, end: 20070812
  3. ZYPREXA [Concomitant]
     Route: 048
     Dates: start: 20070101

REACTIONS (1)
  - JAUNDICE [None]
